FAERS Safety Report 8071162 (Version 4)
Quarter: 2016Q1

REPORT INFORMATION
  Report Type: Report from Study
  Country: US (occurrence: US)
  Receive Date: 20110805
  Receipt Date: 20160329
  Transmission Date: 20160526
  Serious: Yes (Hospitalization, Other)
  Sender: FDA-Public Use
  Company Number: US-VIIV HEALTHCARE LIMITED-B0737100A

PATIENT
  Age: 32 Year
  Sex: Female
  Weight: 109.1 kg

DRUGS (4)
  1. MARAVIROC [Suspect]
     Active Substance: MARAVIROC
     Indication: HIV INFECTION
     Dosage: 150 MG, BID
     Route: 048
     Dates: start: 20110216
  2. RALTEGRAVIR. [Concomitant]
     Active Substance: RALTEGRAVIR
     Indication: HIV INFECTION
     Dates: start: 20110216
  3. RITONAVIR. [Concomitant]
     Active Substance: RITONAVIR
     Indication: HIV INFECTION
     Dates: start: 20110216
  4. DARUNAVIR [Concomitant]
     Active Substance: DARUNAVIR
     Indication: HIV INFECTION
     Dates: start: 20110216

REACTIONS (5)
  - Anal cancer stage 0 [Recovered/Resolved]
  - Anorectal disorder [Recovered/Resolved]
  - Cervix carcinoma stage 0 [Recovered/Resolved]
  - Vaginal cancer [Recovered/Resolved]
  - Vulval cancer [Recovered/Resolved]

NARRATIVE: CASE EVENT DATE: 20110622
